FAERS Safety Report 4717900-5 (Version None)
Quarter: 2005Q3

REPORT INFORMATION
  Report Type: 
  Country: None (occurrence: None)
  Receive Date: 20050715
  Receipt Date: 20050708
  Transmission Date: 20060218
  Serious: Yes (Hospitalization, Other)
  Sender: FDA-Public Use
  Company Number: 2004091432

PATIENT
  Age: 54 Year
  Sex: Male

DRUGS (9)
  1. LIPITOR [Suspect]
     Indication: HYPERLIPIDAEMIA
     Dosage: 10 MG (10 MG,1 IN 1 D),ORAL
     Route: 048
     Dates: end: 20040806
  2. AMARYL [Concomitant]
  3. BLOPRESS                   (CANDESARTAN CILEXETIL) [Concomitant]
  4. CONIEL                    (BENIDIPINE HYDROCHLORIDE) [Concomitant]
  5. COBAMYDE                 (COBAMAMIDE) [Concomitant]
  6. BASEN               (VOGLIBOSE) [Concomitant]
  7. LASIX [Concomitant]
  8. SPIRONOLACTONE [Concomitant]
  9. DOMPERIDONE                     (DOMPERIDONE) [Concomitant]

REACTIONS (4)
  - ACUTE MYOCARDIAL INFARCTION [None]
  - PLEURAL EFFUSION [None]
  - RED BLOOD CELL COUNT DECREASED [None]
  - RHABDOMYOLYSIS [None]
